FAERS Safety Report 20144460 (Version 1)
Quarter: 2021Q4

REPORT INFORMATION
  Report Type: Spontaneous
  Country: US (occurrence: US)
  Receive Date: 20211203
  Receipt Date: 20211203
  Transmission Date: 20220303
  Serious: No
  Sender: FDA-Public Use
  Company Number: US-ELI_LILLY_AND_COMPANY-US202111004238

PATIENT
  Sex: Male

DRUGS (5)
  1. HUMALOG KWIKPEN [Suspect]
     Active Substance: INSULIN LISPRO
     Indication: Type 2 diabetes mellitus
     Dosage: 8 U, BID (4-8 UNITS TWICE DAILY)
     Route: 058
     Dates: start: 202107
  2. HUMALOG KWIKPEN [Suspect]
     Active Substance: INSULIN LISPRO
     Indication: Type 2 diabetes mellitus
     Dosage: 8 U, BID (4-8 UNITS TWICE DAILY)
     Route: 058
     Dates: start: 202107
  3. HUMALOG KWIKPEN [Suspect]
     Active Substance: INSULIN LISPRO
     Dosage: 8 U, BID (4-8 UNITS TWICE DAILY)
     Route: 058
     Dates: start: 202107
  4. HUMALOG KWIKPEN [Suspect]
     Active Substance: INSULIN LISPRO
     Dosage: 8 U, BID (4-8 UNITS TWICE DAILY)
     Route: 058
     Dates: start: 202107
  5. LANTUS [Concomitant]
     Active Substance: INSULIN GLARGINE
     Indication: Diabetes mellitus
     Dosage: 42 U, DAILY
     Route: 065

REACTIONS (6)
  - Pain [Unknown]
  - Blood glucose fluctuation [Unknown]
  - Night sweats [Recovered/Resolved]
  - Fatigue [Unknown]
  - Hypoglycaemia [Unknown]
  - Incorrect dose administered [Unknown]
